FAERS Safety Report 4863788-1 (Version None)
Quarter: 2005Q4

REPORT INFORMATION
  Report Type: 
  Country: None (occurrence: None)
  Receive Date: 20051222
  Receipt Date: 20050823
  Transmission Date: 20060501
  Serious: No
  Sender: FDA-Public Use
  Company Number: US-GLAXOSMITHKLINE-A0571488A

PATIENT
  Age: 45 Year
  Sex: Female

DRUGS (4)
  1. FLONASE [Suspect]
     Dosage: 1SPR IN THE MORNING
     Route: 045
     Dates: start: 20050810, end: 20050823
  2. LOESTRIN 1.5/30 [Concomitant]
  3. XANAX [Concomitant]
  4. CENTRUM [Concomitant]

REACTIONS (18)
  - ASTHENIA [None]
  - COUGH [None]
  - DIARRHOEA [None]
  - DIZZINESS [None]
  - DYSGEUSIA [None]
  - EAR PAIN [None]
  - FACIAL PAIN [None]
  - FOOD POISONING [None]
  - GINGIVAL PAIN [None]
  - HEADACHE [None]
  - NASAL CONGESTION [None]
  - PAIN IN EXTREMITY [None]
  - PHARYNGOLARYNGEAL PAIN [None]
  - RHINALGIA [None]
  - SENSORY DISTURBANCE [None]
  - TOOTHACHE [None]
  - TREMOR [None]
  - VOMITING [None]
